FAERS Safety Report 21657066 (Version 1)
Quarter: 2022Q4

REPORT INFORMATION
  Report Type: Report from Study
  Country: FR (occurrence: None)
  Receive Date: 20221129
  Receipt Date: 20221129
  Transmission Date: 20230113
  Serious: Yes (Death, Hospitalization)
  Sender: FDA-Public Use
  Company Number: 2022A389966

PATIENT
  Age: 547 Month
  Sex: Female
  Weight: 90 kg

DRUGS (4)
  1. EVUSHELD [Suspect]
     Active Substance: CILGAVIMAB\TIXAGEVIMAB
     Indication: COVID-19 prophylaxis
     Dosage: 300 MG (150 MG TIXAGEVIMAB/150 MG CILGAVIMAB) ONCE/SINGLE ADMINISTRATION
     Route: 030
     Dates: start: 20220119
  2. EVUSHELD [Suspect]
     Active Substance: CILGAVIMAB\TIXAGEVIMAB
     Indication: COVID-19 prophylaxis
     Dosage: 300 MG (150 MG TIXAGEVIMAB/150 MG CILGAVIMAB) ONCE/SINGLE ADMINISTRATION
     Route: 030
     Dates: start: 20220620
  3. ENVARSUS XR [Concomitant]
     Active Substance: TACROLIMUS
     Indication: Immunosuppressant drug therapy
  4. CELLCEPT [Concomitant]
     Active Substance: MYCOPHENOLATE MOFETIL
     Indication: Immunosuppressant drug therapy

REACTIONS (2)
  - Cardiac operation [Fatal]
  - COVID-19 [Unknown]

NARRATIVE: CASE EVENT DATE: 20220619
